FAERS Safety Report 8227124-5 (Version None)
Quarter: 2012Q1

REPORT INFORMATION
  Report Type: 
  Country: None (occurrence: None)
  Receive Date: 20120322
  Receipt Date: 20120314
  Transmission Date: 20120608
  Serious: Yes (Hospitalization, Other)
  Sender: FDA-Public Use
  Company Number: US-BAYER-2011-050868

PATIENT
  Age: 32 Year
  Sex: Female
  Weight: 79.365 kg

DRUGS (7)
  1. ZOFRAN [Concomitant]
     Dosage: UNK
  2. MORPHINE [Concomitant]
     Dosage: UNK
  3. CEFOXITIN [Concomitant]
     Dosage: UNK
  4. VALTREX [Concomitant]
  5. ZOSYN [Concomitant]
     Dosage: UNK
  6. IV (INTERPRETED AS INTRAVENOUS) FLUIDS [Concomitant]
  7. YAZ [Suspect]
     Dosage: UNK
     Dates: start: 20060101, end: 20070101

REACTIONS (14)
  - DIARRHOEA [None]
  - DEPRESSION [None]
  - SCAR [None]
  - ABDOMINAL DISTENSION [None]
  - FLATULENCE [None]
  - CONSTIPATION [None]
  - ANXIETY [None]
  - PANCREATITIS [None]
  - ABDOMINAL PAIN [None]
  - INJURY [None]
  - PAIN [None]
  - CHOLECYSTITIS CHRONIC [None]
  - GALLBLADDER DISORDER [None]
  - DYSPEPSIA [None]
